FAERS Safety Report 10027779 (Version 2)
Quarter: 2014Q2

REPORT INFORMATION
  Report Type: Spontaneous
  Country: BR (occurrence: BR)
  Receive Date: 20140321
  Receipt Date: 20140506
  Transmission Date: 20141212
  Serious: Yes (Disabling, Other)
  Sender: FDA-Public Use
  Company Number: BR-ROCHE-1366173

PATIENT
  Sex: Female
  Weight: 78 kg

DRUGS (6)
  1. RIVOTRIL [Suspect]
     Indication: BIPOLAR DISORDER
     Route: 065
     Dates: start: 2000, end: 2014
  2. FLUOXETIN [Concomitant]
     Route: 065
     Dates: start: 2000
  3. CARBAMAZEPINE [Concomitant]
     Route: 065
     Dates: start: 2000
  4. CARBOLITIUM [Concomitant]
     Route: 065
     Dates: start: 2000
  5. ATENOLOL [Concomitant]
     Route: 065
  6. AMITRIPTYLINE [Concomitant]
     Route: 065
     Dates: start: 2000

REACTIONS (6)
  - Monoplegia [Not Recovered/Not Resolved]
  - Hallucination [Not Recovered/Not Resolved]
  - Weight decreased [Unknown]
  - Memory impairment [Unknown]
  - Intentional product misuse [Unknown]
  - Insomnia [Not Recovered/Not Resolved]
